FAERS Safety Report 17252605 (Version 1)
Quarter: 2020Q1

REPORT INFORMATION
  Report Type: Other
  Country: CA (occurrence: CA)
  Receive Date: 20200109
  Receipt Date: 20200109
  Transmission Date: 20200409
  Serious: Yes (Other)
  Sender: FDA-Public Use
  Company Number: CA-COVIS PHARMA B.V.-2020COV00003

PATIENT
  Age: 58 Year
  Sex: Female

DRUGS (4)
  1. OMNARIS [Suspect]
     Active Substance: CICLESONIDE
     Indication: CHRONIC SINUSITIS
     Dosage: 200 ?G, 1X/DAY
     Route: 055
  2. PROGESTERONE. [Concomitant]
     Active Substance: PROGESTERONE
  3. AVAPRO [Concomitant]
     Active Substance: IRBESARTAN
  4. PAXIL [Concomitant]
     Active Substance: PAROXETINE HYDROCHLORIDE

REACTIONS (4)
  - Hepatic enzyme increased [Recovered/Resolved]
  - Ultrasound liver abnormal [Recovered/Resolved]
  - Hepatic steatosis [Recovered/Resolved]
  - Alanine aminotransferase increased [Recovered/Resolved]
